FAERS Safety Report 21607038 (Version 2)
Quarter: 2023Q2

REPORT INFORMATION
  Report Type: Report from Study
  Country: US (occurrence: US)
  Receive Date: 20221117
  Receipt Date: 20230405
  Transmission Date: 20230722
  Serious: Yes (Other)
  Sender: FDA-Public Use
  Company Number: US-ABBVIE-4202810

PATIENT
  Sex: Female

DRUGS (1)
  1. HUMIRA [Suspect]
     Active Substance: ADALIMUMAB
     Indication: Psoriatic arthropathy
     Route: 058
     Dates: start: 20180121

REACTIONS (4)
  - Hip arthroplasty [Not Recovered/Not Resolved]
  - Scoliosis [Unknown]
  - Hip fracture [Not Recovered/Not Resolved]
  - Spinal stenosis [Unknown]

NARRATIVE: CASE EVENT DATE: 20180101
